FAERS Safety Report 6489851-X (Version None)
Quarter: 2009Q4

REPORT INFORMATION
  Report Type: 
  Country: None (occurrence: None)
  Receive Date: 20091211
  Receipt Date: 20091202
  Transmission Date: 20100525
  Serious: Yes (Disabling, Other)
  Sender: FDA-Public Use
  Company Number: DE-RANBAXY-2009US-29555

PATIENT

DRUGS (1)
  1. CLINDAMYCIN [Suspect]
     Indication: PROMOTION OF WOUND HEALING
     Dosage: 300 MG, TID
     Route: 048

REACTIONS (3)
  - FOOT AMPUTATION [None]
  - OSTEOMYELITIS [None]
  - VASCULITIS NECROTISING [None]
